FAERS Safety Report 14043908 (Version 1)
Quarter: 2017Q4

REPORT INFORMATION
  Report Type: Spontaneous
  Country: US (occurrence: US)
  Receive Date: 20171004
  Receipt Date: 20171004
  Transmission Date: 20180321
  Serious: No
  Sender: FDA-Public Use
  Company Number: US-INDIVIOR LIMITED-INDV-096813-2016

PATIENT
  Age: 52 Year
  Sex: Male

DRUGS (1)
  1. SUBOXONE [Suspect]
     Active Substance: BUPRENORPHINE HYDROCHLORIDE\NALOXONE HYDROCHLORIDE
     Indication: DRUG USE DISORDER
     Dosage: 4 MG, TWICE DAILY
     Route: 060
     Dates: start: 20161101

REACTIONS (7)
  - Irritability [Unknown]
  - Unevaluable event [Unknown]
  - Product use issue [Not Recovered/Not Resolved]
  - Confusional state [Unknown]
  - Product preparation error [Not Recovered/Not Resolved]
  - Drug ineffective [Unknown]
  - Agitation [Unknown]

NARRATIVE: CASE EVENT DATE: 201611
